FAERS Safety Report 18657723 (Version 1)
Quarter: 2020Q4

REPORT INFORMATION
  Report Type: Spontaneous
  Country: FR (occurrence: FR)
  Receive Date: 20201223
  Receipt Date: 20201223
  Transmission Date: 20210114
  Serious: Yes (Other)
  Sender: FDA-Public Use
  Company Number: FR-PFIZER INC-2020501349

PATIENT
  Age: 19 Year
  Sex: Male

DRUGS (3)
  1. XANAX [Suspect]
     Active Substance: ALPRAZOLAM
     Dosage: 11 TABLETS (0.5MG), SINGLE
     Route: 048
  2. ALCOOL [Suspect]
     Active Substance: ALCOHOL
     Dosage: 2 GLASSES OF STRONG ALCOHOL
     Route: 048
  3. COCAINE [Suspect]
     Active Substance: COCAINE
     Indication: DRUG DEPENDENCE
     Dosage: UNK
     Route: 042

REACTIONS (3)
  - Drug abuse [Unknown]
  - Mydriasis [Recovered/Resolved]
  - Somnolence [Recovered/Resolved]

NARRATIVE: CASE EVENT DATE: 20200701
